FAERS Safety Report 16257294 (Version 1)
Quarter: 2019Q2

REPORT INFORMATION
  Report Type: Spontaneous
  Country: DE (occurrence: DE)
  Receive Date: 20190430
  Receipt Date: 20190430
  Transmission Date: 20190711
  Serious: Yes (Hospitalization)
  Sender: FDA-Public Use
  Company Number: DE-FRESENIUS KABI-FK201904811

PATIENT
  Sex: Female

DRUGS (3)
  1. VANCOMYCIN HYDROCHLORIDE FOR INJECTION, USP [Suspect]
     Active Substance: VANCOMYCIN HYDROCHLORIDE
     Indication: VASCULITIS
     Route: 042
     Dates: start: 20190418, end: 20190422
  2. NO DRUG NAME [Suspect]
     Active Substance: UNSPECIFIED INGREDIENT
     Indication: VASCULITIS
     Route: 065
  3. VANCOMYCIN HYDROCHLORIDE FOR INJECTION, USP [Suspect]
     Active Substance: VANCOMYCIN HYDROCHLORIDE
     Indication: STREPTOCOCCAL BACTERAEMIA

REACTIONS (4)
  - Overdose [Not Recovered/Not Resolved]
  - Renal function test abnormal [Not Recovered/Not Resolved]
  - Product use in unapproved indication [Unknown]
  - Acute kidney injury [Not Recovered/Not Resolved]

NARRATIVE: CASE EVENT DATE: 20190422
